FAERS Safety Report 17591956 (Version 1)
Quarter: 2020Q1

REPORT INFORMATION
  Report Type: Spontaneous
  Country: US (occurrence: US)
  Receive Date: 20200327
  Receipt Date: 20200327
  Transmission Date: 20200409
  Serious: No
  Sender: FDA-Public Use
  Company Number: US-ASTRAZENECA-2020SE41008

PATIENT
  Age: 51 Year
  Sex: Male
  Weight: 74.9 kg

DRUGS (1)
  1. RHINOCORT ALLERGY [Suspect]
     Active Substance: BUDESONIDE
     Indication: MULTIPLE ALLERGIES
     Dosage: 1 SPRAY EACH EVERYDAY
     Route: 065
     Dates: start: 20191215, end: 20200220

REACTIONS (1)
  - Ear discomfort [Recovered/Resolved]

NARRATIVE: CASE EVENT DATE: 20200125
